FAERS Safety Report 4875819-3 (Version None)
Quarter: 2006Q1

REPORT INFORMATION
  Report Type: 
  Country: None (occurrence: None)
  Receive Date: 20060106
  Receipt Date: 20050422
  Transmission Date: 20060701
  Serious: Yes (Death)
  Sender: FDA-Public Use
  Company Number: 05H-163-0298335-00

PATIENT
  Age: 41 Year
  Sex: Female
  Weight: 80 kg

DRUGS (1)
  1. DEMEROL [Suspect]
     Dosage: 20 MG/HR, 10 MG WITH 12 MINUTE LOCKOUT, INTRAVENOUS
     Route: 042
     Dates: start: 20041001

REACTIONS (2)
  - CARDIAC ARREST [None]
  - DRUG TOXICITY [None]
